FAERS Safety Report 6829057-5 (Version None)
Quarter: 2010Q3

REPORT INFORMATION
  Report Type: 
  Country: None (occurrence: None)
  Receive Date: 20100709
  Receipt Date: 20070228
  Transmission Date: 20110219
  Serious: No
  Sender: FDA-Public Use
  Company Number: US-PFIZER INC-2007016919

PATIENT
  Sex: Male
  Weight: 92.99 kg

DRUGS (4)
  1. CHANTIX [Suspect]
     Indication: SMOKING CESSATION THERAPY
     Route: 048
     Dates: start: 20070201
  2. SYNTHROID [Concomitant]
     Route: 048
  3. TAGAMET [Concomitant]
     Route: 048
  4. OXYCODONE HCL [Concomitant]

REACTIONS (6)
  - ABDOMINAL DISCOMFORT [None]
  - ARTHRALGIA [None]
  - COGNITIVE DISORDER [None]
  - HEADACHE [None]
  - INFLUENZA LIKE ILLNESS [None]
  - SLUGGISHNESS [None]
